FAERS Safety Report 8443544-8 (Version None)
Quarter: 2012Q2

REPORT INFORMATION
  Report Type: 
  Country: None (occurrence: None)
  Receive Date: 20120618
  Receipt Date: 20120611
  Transmission Date: 20120825
  Serious: No
  Sender: FDA-Public Use
  Company Number: US-PFIZER INC-2012141158

PATIENT
  Age: 69 Year
  Sex: Female

DRUGS (1)
  1. LYRICA [Suspect]
     Dosage: UNK
     Dates: start: 20120201

REACTIONS (5)
  - DRUG INEFFECTIVE [None]
  - BLISTER [None]
  - BURNING SENSATION [None]
  - PRURITUS [None]
  - PAIN [None]
